FAERS Safety Report 15352614 (Version 1)
Quarter: 2018Q3

REPORT INFORMATION
  Report Type: Report from Study
  Country: US (occurrence: US)
  Receive Date: 20180905
  Receipt Date: 20180905
  Transmission Date: 20181010
  Serious: Yes (Hospitalization, Other)
  Sender: FDA-Public Use
  Company Number: US-BAYER-2018-123802

PATIENT
  Age: 51 Year
  Sex: Female

DRUGS (2)
  1. STIVARGA [Suspect]
     Active Substance: REGORAFENIB
     Indication: COLON CANCER
  2. STIVARGA [Suspect]
     Active Substance: REGORAFENIB
     Indication: COLORECTAL CANCER
     Dosage: 80 MG DAILY
     Route: 048
     Dates: start: 20180625, end: 20180815

REACTIONS (14)
  - Abdominal pain upper [Not Recovered/Not Resolved]
  - Drug ineffective [None]
  - Fatigue [None]
  - Constipation [None]
  - Obstruction [None]
  - Dysphonia [None]
  - Musculoskeletal pain [None]
  - Abdominal pain [None]
  - Dry skin [None]
  - Nausea [Not Recovered/Not Resolved]
  - Drug dose omission [None]
  - Fatigue [Recovered/Resolved]
  - Off label use [None]
  - Tendonitis [None]

NARRATIVE: CASE EVENT DATE: 201806
